FAERS Safety Report 9305920 (Version 1)
Quarter: 2013Q2

REPORT INFORMATION
  Report Type: Spontaneous
  Country: US (occurrence: None)
  Receive Date: 20130520
  Receipt Date: 20130520
  Transmission Date: 20140414
  Serious: Yes (Other)
  Sender: FDA-Public Use
  Company Number: AUR-APL-2013-04080

PATIENT
  Age: 62 Year
  Sex: Male

DRUGS (9)
  1. AMLODIPINE [Suspect]
     Indication: PRODUCT USED FOR UNKNOWN INDICATION
  2. ISOSORBIDE DINITRATE(ISOSORBIDE DINITRATE) [Concomitant]
  3. LISINOPRIL(LISINOPRIL) [Concomitant]
  4. METOPROLOL(METOPROLOL) [Concomitant]
  5. ASPIRIN(ACETYLSALICYLIC ACID) [Concomitant]
  6. CLOPIDOGREL(CLOPIDOGREL) [Concomitant]
  7. FENOFIBRATE(FENOFIBRATE) [Concomitant]
  8. SIMVASTATIN(SIMVASTATIN) [Concomitant]
  9. RANITIDINE(RANITIDINE) [Concomitant]

REACTIONS (1)
  - Cutaneous lupus erythematosus [None]
